FAERS Safety Report 19022384 (Version 2)
Quarter: 2021Q3

REPORT INFORMATION
  Report Type: Spontaneous
  Country: US (occurrence: US)
  Receive Date: 20210317
  Receipt Date: 20210817
  Transmission Date: 20211014
  Serious: No
  Sender: FDA-Public Use
  Company Number: US-INCYTE CORPORATION-2021IN001073

PATIENT

DRUGS (2)
  1. JAKAFI [Suspect]
     Active Substance: RUXOLITINIB
     Indication: OESOPHAGEAL CANDIDIASIS
     Dosage: 10 MILLIGRAM, BID
     Route: 048
     Dates: start: 202001
  2. JAKAFI [Suspect]
     Active Substance: RUXOLITINIB
     Indication: ORAL CANDIDIASIS
     Dosage: 15 MILLIGRAM, BID
     Route: 048
     Dates: start: 202001

REACTIONS (2)
  - Off label use [Unknown]
  - Product dose omission issue [Unknown]
